FAERS Safety Report 22168091 (Version 3)
Quarter: 2023Q2

REPORT INFORMATION
  Report Type: Report from Study
  Country: US (occurrence: US)
  Receive Date: 20230403
  Receipt Date: 20230426
  Transmission Date: 20230722
  Serious: No
  Sender: FDA-Public Use
  Company Number: US-PFIZER INC-PV202300059883

PATIENT
  Age: 83 Year
  Sex: Female
  Weight: 75.24 kg

DRUGS (15)
  1. IBRANCE [Suspect]
     Active Substance: PALBOCICLIB
     Indication: Breast cancer
     Dosage: DAILY FOR 21 DAYS OF EVERY 28-DAY CYCLE
     Route: 048
     Dates: start: 20230320
  2. GEDATOLISIB [Suspect]
     Active Substance: GEDATOLISIB
     Indication: Breast cancer
     Dosage: ON DAYS 1, 8, AND 15 OF EVERY 28-DAY CYCLE (LYOPHILIZED POWDER FOR RECONSTITUTION)
     Route: 042
     Dates: start: 20230320
  3. FASLODEX [Suspect]
     Active Substance: FULVESTRANT
     Indication: Breast cancer
     Dosage: EVERY TWO WEEKS BREAST CYCLE 1 AND EVERY 4 UNKNOWN WEEKS BEGINNING WITH CYCLE 2, DAY 1 (INJECTION)
     Route: 030
     Dates: start: 20230320
  4. ATORVASTATIN [Concomitant]
     Active Substance: ATORVASTATIN
     Indication: Hyperlipidaemia
     Dosage: UNK
     Dates: start: 2008
  5. SPIRONOLACTONE [Concomitant]
     Active Substance: SPIRONOLACTONE
     Indication: Hypertension
     Dosage: UNK
     Dates: start: 2008
  6. POTASSIUM GLUCONATE [Concomitant]
     Active Substance: POTASSIUM GLUCONATE
     Indication: Supplementation therapy
     Dosage: UNK
     Dates: start: 20160209
  7. BIOTIN [Concomitant]
     Active Substance: BIOTIN
     Indication: Supplementation therapy
     Dosage: UNK
     Dates: start: 20160209
  8. MAGNESIUM [Concomitant]
     Active Substance: MAGNESIUM
     Indication: Supplementation therapy
     Dosage: UNK
     Dates: start: 20160209
  9. ALIVE WOMEN^S 50 PLUS GUMMY MULTIVITAMIN [Concomitant]
     Indication: Prophylaxis
     Dosage: UNK
     Dates: start: 20160209
  10. CORRECTOL [BISACODYL] [Concomitant]
     Indication: Intestinal obstruction
     Dosage: UNK
     Dates: start: 202209
  11. ALOE VERA LEAF [Concomitant]
     Active Substance: ALOE VERA LEAF
     Indication: Supplementation therapy
     Dosage: UNK
     Dates: start: 202209
  12. METFORMIN [Concomitant]
     Active Substance: METFORMIN HYDROCHLORIDE
     Indication: Type 2 diabetes mellitus
     Dosage: UNK
     Dates: start: 202209, end: 20230314
  13. JARDIANCE [Concomitant]
     Active Substance: EMPAGLIFLOZIN
     Indication: Type 2 diabetes mellitus
     Dosage: UNK
     Dates: start: 202209, end: 20230314
  14. NOVOLOG [Concomitant]
     Active Substance: INSULIN ASPART
     Indication: Type 2 diabetes mellitus
     Dosage: UNK
     Dates: start: 20230314
  15. GLIPIZIDE [Concomitant]
     Active Substance: GLIPIZIDE
     Indication: Type 2 diabetes mellitus
     Dosage: UNK
     Dates: start: 202209, end: 20230314

REACTIONS (1)
  - Hyperglycaemia [Recovered/Resolved]

NARRATIVE: CASE EVENT DATE: 20230321
